FAERS Safety Report 8301645-9 (Version None)
Quarter: 2012Q2

REPORT INFORMATION
  Report Type: 
  Country: None (occurrence: None)
  Receive Date: 20120420
  Receipt Date: 20120413
  Transmission Date: 20120825
  Serious: Yes (Hospitalization)
  Sender: FDA-Public Use
  Company Number: US-JNJFOC-20120109584

PATIENT
  Sex: Male
  Weight: 108.86 kg

DRUGS (4)
  1. LEXAPRO [Concomitant]
     Indication: BIPOLAR DISORDER
     Route: 048
  2. DURAGESIC-100 [Suspect]
     Indication: BACK PAIN
     Route: 062
     Dates: start: 20020101
  3. DURAGESIC-100 [Suspect]
     Indication: INTERVERTEBRAL DISC PROTRUSION
     Route: 062
     Dates: start: 20020101
  4. AMBIEN [Concomitant]
     Indication: SLEEP DISORDER
     Route: 048

REACTIONS (4)
  - TREATMENT NONCOMPLIANCE [None]
  - PERSONALITY CHANGE [None]
  - MENTAL DISORDER [None]
  - BLOOD CHOLESTEROL INCREASED [None]
